FAERS Safety Report 10220049 (Version 2)
Quarter: 2014Q2

REPORT INFORMATION
  Report Type: Spontaneous
  Country: US (occurrence: US)
  Receive Date: 20140605
  Receipt Date: 20140624
  Transmission Date: 20141212
  Serious: No
  Sender: FDA-Public Use
  Company Number: US-TEVA-484792USA

PATIENT
  Sex: Female
  Weight: 47.67 kg

DRUGS (2)
  1. ACTIQ [Suspect]
     Indication: PAIN
     Dosage: 1200 MICROGRAM DAILY;
     Dates: start: 2006, end: 20140525
  2. OXYCONTIN [Concomitant]
     Indication: PAIN

REACTIONS (2)
  - Pain [Not Recovered/Not Resolved]
  - Off label use [Unknown]
